FAERS Safety Report 9599288 (Version 1)
Quarter: 2013Q4

REPORT INFORMATION
  Report Type: Spontaneous
  Country: US (occurrence: US)
  Receive Date: 20131004
  Receipt Date: 20131004
  Transmission Date: 20140711
  Serious: No
  Sender: FDA-Public Use
  Company Number: US-AMGEN-USASP2013028657

PATIENT
  Age: 44 Year
  Sex: Female
  Weight: 104 kg

DRUGS (1)
  1. ENBREL [Suspect]
     Indication: PSORIATIC ARTHROPATHY
     Dosage: UNK
     Route: 058
     Dates: start: 2011, end: 2011

REACTIONS (2)
  - Injection site reaction [Unknown]
  - Injection site vesicles [Unknown]
